FAERS Safety Report 20721245 (Version 1)
Quarter: 2022Q2

REPORT INFORMATION
  Report Type: Spontaneous
  Country: US (occurrence: US)
  Receive Date: 20220418
  Receipt Date: 20220418
  Transmission Date: 20220721
  Serious: Yes (Death, Hospitalization)
  Sender: FDA-Public Use
  Company Number: US-Taiho Oncology Inc-EU-2021-03625

PATIENT
  Age: 61 Year
  Sex: Male
  Weight: 94 kg

DRUGS (2)
  1. LONSURF [Suspect]
     Active Substance: TIPIRACIL HYDROCHLORIDE\TRIFLURIDINE
     Indication: Product used for unknown indication
     Dosage: DOSE, FREQUENCY AND CYCLE UNKNOWN
     Route: 048
  2. RAMUCIRUMAB [Suspect]
     Active Substance: RAMUCIRUMAB
     Indication: Product used for unknown indication

REACTIONS (7)
  - Haematochezia [Fatal]
  - Gastrointestinal disorder [Fatal]
  - Rectal haemorrhage [Fatal]
  - Large intestinal haemorrhage [Fatal]
  - Cerebrovascular accident [Fatal]
  - Nervous system disorder [Fatal]
  - Disease progression [Fatal]

NARRATIVE: CASE EVENT DATE: 20200817
